FAERS Safety Report 25108353 (Version 1)
Quarter: 2025Q1

REPORT INFORMATION
  Report Type: Spontaneous
  Country: FI (occurrence: FI)
  Receive Date: 20250322
  Receipt Date: 20250322
  Transmission Date: 20250408
  Serious: Yes (Congenital Anomaly)
  Sender: ABBVIE
  Company Number: FI-ABBVIE-6180747

PATIENT
  Sex: Male

DRUGS (1)
  1. RINVOQ [Suspect]
     Active Substance: UPADACITINIB
     Indication: Maternal exposure timing unspecified
     Route: 064

REACTIONS (2)
  - Alpha-thalassaemia-intellectual deficit syndrome [Unknown]
  - Foetal exposure during pregnancy [Unknown]
